FAERS Safety Report 9225414 (Version 2)
Quarter: 2013Q2

REPORT INFORMATION
  Report Type: Report from Study
  Country: US (occurrence: US)
  Receive Date: 20130411
  Receipt Date: 20130520
  Transmission Date: 20140414
  Serious: Yes (Death, Other)
  Sender: FDA-Public Use
  Company Number: US-ROCHE-1210475

PATIENT
  Sex: 0

DRUGS (2)
  1. ALTEPLASE [Suspect]
     Indication: ISCHAEMIC STROKE
     Dosage: 0.9 MG/KG, 10% INFUSED AS BOLUS, THE REMAINDER INFUSED DURING 1H.
     Route: 042
  2. RETEPLASE [Suspect]
     Indication: ISCHAEMIC STROKE
     Route: 013

REACTIONS (5)
  - Death [Fatal]
  - Cerebral haemorrhage [Fatal]
  - Oedema [Fatal]
  - Drug ineffective [Unknown]
  - Drug effect decreased [Unknown]
